FAERS Safety Report 4336931-0 (Version None)
Quarter: 2004Q2

REPORT INFORMATION
  Report Type: 
  Country: None (occurrence: None)
  Receive Date: 20040408
  Receipt Date: 20040324
  Transmission Date: 20050107
  Serious: Yes (Hospitalization)
  Sender: FDA-Public Use
  Company Number: 182544

PATIENT
  Sex: Female

DRUGS (7)
  1. AVONEX [Suspect]
     Indication: MULTIPLE SCLEROSIS
     Dosage: 30 MCG IM
     Route: 030
     Dates: start: 20030101
  2. AVONEX [Suspect]
     Indication: MULTIPLE SCLEROSIS
     Dates: start: 20030101
  3. FOSAMAX [Concomitant]
  4. BACLOFEN [Concomitant]
  5. ZESTRIL [Concomitant]
  6. AMANTADINE HCL [Concomitant]
  7. METHOTREXATE [Concomitant]

REACTIONS (4)
  - FALL [None]
  - GAIT DISTURBANCE [None]
  - INFLUENZA LIKE ILLNESS [None]
  - LOWER LIMB FRACTURE [None]
